FAERS Safety Report 5782280-3 (Version None)
Quarter: 2008Q2

REPORT INFORMATION
  Report Type: 
  Country: None (occurrence: None)
  Receive Date: 20080623
  Receipt Date: 20080611
  Transmission Date: 20081010
  Serious: Yes (Other)
  Sender: FDA-Public Use
  Company Number: US-PFIZER INC-2008001106

PATIENT
  Sex: Female
  Weight: 72.727 kg

DRUGS (5)
  1. DILANTIN [Suspect]
     Indication: CONVULSION
  2. HYDROCHLOROTHIAZIDE [Concomitant]
  3. NORVASC [Concomitant]
  4. POTASSIUM CHLORIDE [Concomitant]
  5. PLENDIL [Concomitant]

REACTIONS (16)
  - ASTHENIA [None]
  - BODY HEIGHT DECREASED [None]
  - CEREBROVASCULAR ACCIDENT [None]
  - CONVULSION [None]
  - DIZZINESS [None]
  - FACIAL PALSY [None]
  - FEELING DRUNK [None]
  - GAIT DISTURBANCE [None]
  - HEMIPARESIS [None]
  - HYPERTENSION [None]
  - MALAISE [None]
  - MENTAL DISORDER [None]
  - SKIN HYPERPIGMENTATION [None]
  - SOMATISATION DISORDER [None]
  - SOMNOLENCE [None]
  - VASCULAR DEMENTIA [None]
